FAERS Safety Report 4407944-5 (Version None)
Quarter: 2004Q3

REPORT INFORMATION
  Report Type: 
  Country: None (occurrence: None)
  Receive Date: 20040721
  Receipt Date: 20040701
  Transmission Date: 20050211
  Serious: Yes (Life-Threatening, Hospitalization)
  Sender: FDA-Public Use
  Company Number: B01200400524

PATIENT
  Age: 53 Year
  Sex: Male

DRUGS (7)
  1. (OXALIPLATIN) - SOLUTION - 135 MG [Suspect]
     Indication: COLORECTAL CANCER METASTATIC
     Dosage: 135 MG Q2W (CUMLATIVE DOSE: 615 MG)
     Route: 042
     Dates: start: 20040309, end: 20040309
  2. (OXALIPLATIN) - SOLUTION - 135 MG [Suspect]
     Indication: METASTASES TO LIVER
     Dosage: 135 MG Q2W (CUMLATIVE DOSE: 615 MG)
     Route: 042
     Dates: start: 20040309, end: 20040309
  3. FLUOROURACIL [Suspect]
     Dosage: 400 MG/M2 BOLUS THEN 600 MG/M2 22 HOUR CONTINOUS INFUSION AND D2 Q2W (CUMULATIVE DOSE 7240 MG)
     Route: 042
     Dates: start: 20040309, end: 20040310
  4. (LEUCOVORIN) SOLUTION 360 MG [Suspect]
     Dosage: 360 MG Q2W (CUMULATIVE DOSE: 1500 MG)
     Route: 042
     Dates: start: 20040309, end: 20040310
  5. TROPISETRON [Concomitant]
  6. METOCLOPRAMIDE [Concomitant]
  7. DEXAMETHASONE [Concomitant]

REACTIONS (8)
  - BLOOD CALCIUM INCREASED [None]
  - DEHYDRATION [None]
  - DIABETIC KETOACIDOSIS [None]
  - HYPERLIPIDAEMIA [None]
  - HYPOKALAEMIA [None]
  - HYPOVOLAEMIC SHOCK [None]
  - PANCREATITIS [None]
  - SEPSIS [None]
